FAERS Safety Report 15244127 (Version 1)
Quarter: 2018Q3

REPORT INFORMATION
  Report Type: Spontaneous
  Country: FR (occurrence: FR)
  Receive Date: 20180806
  Receipt Date: 20180806
  Transmission Date: 20181010
  Serious: Yes (Hospitalization, Other)
  Sender: FDA-Public Use
  Company Number: FR-SAKK-2018SA160647AA

PATIENT
  Age: 30 Year
  Sex: Female

DRUGS (2)
  1. ENOXAPARIN SODIUM. [Suspect]
     Active Substance: ENOXAPARIN SODIUM
     Indication: PRODUCT USED FOR UNKNOWN INDICATION
     Dosage: UNK
  2. ENOXAPARIN SODIUM. [Suspect]
     Active Substance: ENOXAPARIN SODIUM
     Dosage: 0.6 ML, Q12H

REACTIONS (8)
  - Auricular swelling [Recovered/Resolved]
  - Exposure during pregnancy [Recovered/Resolved]
  - Skin lesion [Recovered/Resolved]
  - Abortion spontaneous [Unknown]
  - Systemic lupus erythematosus [Recovered/Resolved]
  - Foetal death [Unknown]
  - Arthritis [Recovered/Resolved]
  - Pyrexia [Recovered/Resolved]
